FAERS Safety Report 17447178 (Version 1)
Quarter: 2020Q1

REPORT INFORMATION
  Report Type: Spontaneous
  Country: US (occurrence: US)
  Receive Date: 20200221
  Receipt Date: 20200221
  Transmission Date: 20200409
  Serious: No
  Sender: FDA-Public Use
  Company Number: US-AMNEAL PHARMACEUTICALS-2019AMN00714

PATIENT
  Age: 43 Year
  Sex: Female
  Weight: 83.9 kg

DRUGS (4)
  1. TOPEROL [Concomitant]
     Indication: BLOOD PRESSURE MEASUREMENT
     Dosage: UNK, 1X/DAY
  2. METFORMIN HYDROCHLORIDE. [Suspect]
     Active Substance: METFORMIN HYDROCHLORIDE
     Indication: DIABETES MELLITUS
     Dosage: 750 MG, 1X/DAY
     Route: 065
     Dates: start: 201010, end: 20190617
  3. OTEZLA [Concomitant]
     Active Substance: APREMILAST
     Indication: PSORIASIS
     Dosage: UNK, 2X/DAY
  4. OZEMPIC [Concomitant]
     Active Substance: SEMAGLUTIDE
     Indication: DIABETES MELLITUS
     Dosage: UNK (ONCE A WEEK)

REACTIONS (3)
  - Vomiting [Unknown]
  - Product quality issue [Unknown]
  - Product residue present [Unknown]

NARRATIVE: CASE EVENT DATE: 201904
